FAERS Safety Report 4603999-3 (Version None)
Quarter: 2005Q1

REPORT INFORMATION
  Report Type: 
  Country: None (occurrence: None)
  Receive Date: 20050308
  Receipt Date: 20050224
  Transmission Date: 20050727
  Serious: Yes (Other)
  Sender: FDA-Public Use
  Company Number: 2005037495

PATIENT
  Age: 79 Year
  Sex: Female

DRUGS (12)
  1. ZYVOX [Suspect]
     Indication: STAPHYLOCOCCAL INFECTION
     Dosage: 1200 MG (600 MG, BID), ORAL
     Route: 048
     Dates: end: 20050216
  2. CLOPIDOGREL BISULFATE [Suspect]
     Indication: ILL-DEFINED DISORDER
     Dates: end: 20050216
  3. ASPIRIN [Suspect]
     Indication: ILL-DEFINED DISORDER
     Dates: end: 20050216
  4. DILTIAZEM HYDROCHLORIDE [Concomitant]
  5. METFORMIN HCL [Concomitant]
  6. ROSIGLITAZONE MALEATE [Concomitant]
  7. GLICLAZIDE (GLICLAZIDE) [Concomitant]
  8. POTASSIUM ACETATE [Concomitant]
  9. GABAPENTIN [Concomitant]
  10. QUETIAPINE FUMARATE (QUETIAPINE FUMARATE) [Concomitant]
  11. CLONAZEPAM [Concomitant]
  12. DIPHENHYDRAMINE HCL [Concomitant]

REACTIONS (7)
  - CONFUSIONAL STATE [None]
  - DIARRHOEA [None]
  - HAEMORRHAGE [None]
  - ILEUS [None]
  - PLATELET COUNT DECREASED [None]
  - PYREXIA [None]
  - WHITE BLOOD CELL COUNT DECREASED [None]
